FAERS Safety Report 21661811 (Version 1)
Quarter: 2022Q4

REPORT INFORMATION
  Report Type: Report from Study
  Country: CO (occurrence: CO)
  Receive Date: 20221130
  Receipt Date: 20221130
  Transmission Date: 20230113
  Serious: Yes (Other)
  Sender: FDA-Public Use
  Company Number: CO-BAYER-2022A164647

PATIENT
  Age: 82 Year
  Sex: Male

DRUGS (5)
  1. EYLEA [Suspect]
     Active Substance: AFLIBERCEPT
     Indication: Neovascular age-related macular degeneration
     Dosage: UNK (LEFT EYE), SOLUTION FOR INJECTION, 40MG/ML
     Dates: start: 20220220, end: 20220220
  2. EYLEA [Suspect]
     Active Substance: AFLIBERCEPT
     Dosage: UNK (LEFT EYE), SOLUTION FOR INJECTION, 40MG/ML
     Dates: start: 20220320, end: 20220320
  3. EYLEA [Suspect]
     Active Substance: AFLIBERCEPT
     Dosage: UNK (LEFT EYE), SOLUTION FOR INJECTION, 40MG/ML
     Dates: start: 20220420, end: 20220420
  4. EYLEA [Suspect]
     Active Substance: AFLIBERCEPT
     Dosage: UNK (LEFT EYE), SOLUTION FOR INJECTION, 40MG/ML
     Dates: start: 20220801, end: 20220801
  5. EYLEA [Suspect]
     Active Substance: AFLIBERCEPT
     Dosage: UNK (LEFT EYE), SOLUTION FOR INJECTION, 40MG/ML
     Dates: start: 20221023, end: 20221023

REACTIONS (2)
  - Eye haemorrhage [Recovered/Resolved]
  - Eye irritation [Recovered/Resolved]

NARRATIVE: CASE EVENT DATE: 20221023
